FAERS Safety Report 4952377-6 (Version None)
Quarter: 2006Q1

REPORT INFORMATION
  Report Type: 
  Country: None (occurrence: None)
  Receive Date: 20060320
  Receipt Date: 20060310
  Transmission Date: 20060701
  Serious: Yes (Hospitalization, Other)
  Sender: FDA-Public Use
  Company Number: 2006033480

PATIENT
  Sex: Female
  Weight: 79.3795 kg

DRUGS (2)
  1. NICOTROL [Suspect]
     Indication: SMOKING CESSATION THERAPY
     Dosage: INHALATION
     Route: 055
     Dates: start: 20050101
  2. RISPERIDONE [Concomitant]

REACTIONS (7)
  - CEREBROVASCULAR ACCIDENT [None]
  - DRY MOUTH [None]
  - DYSGEUSIA [None]
  - FEELING DRUNK [None]
  - MALAISE [None]
  - NAUSEA [None]
  - STRESS [None]
